FAERS Safety Report 4985866-9 (Version None)
Quarter: 2006Q2

REPORT INFORMATION
  Report Type: 
  Country: None (occurrence: None)
  Receive Date: 20060428
  Receipt Date: 20060224
  Transmission Date: 20061013
  Serious: No
  Sender: FDA-Public Use
  Company Number: US-GLAXOSMITHKLINE-A0595138A

PATIENT
  Age: 3 Year
  Sex: Female

DRUGS (2)
  1. ZOFRAN [Suspect]
     Indication: VOMITING
     Dosage: 4MG AS REQUIRED
     Route: 048
     Dates: start: 20060224
  2. PREVACID [Concomitant]

REACTIONS (2)
  - DRUG ADMINISTRATION ERROR [None]
  - DRUG INEFFECTIVE [None]
